FAERS Safety Report 6418629-8 (Version None)
Quarter: 2009Q4

REPORT INFORMATION
  Report Type: 
  Country: None (occurrence: None)
  Receive Date: 20091021
  Receipt Date: 20090729
  Transmission Date: 20100525
  Serious: No
  Sender: FDA-Public Use
  Company Number: ALL1-2009-02092

PATIENT
  Age: 8 Year
  Sex: Female
  Weight: 20.4 kg

DRUGS (2)
  1. VYVANSE [Suspect]
     Indication: ATTENTION DEFICIT/HYPERACTIVITY DISORDER
     Dosage: 30 MG, 1X/DAY:QD, ORAL
     Route: 048
  2. CLARITIN (GLICLAZIDE) [Concomitant]

REACTIONS (7)
  - ABDOMINAL PAIN UPPER [None]
  - DECREASED APPETITE [None]
  - DEHYDRATION [None]
  - DEPRESSED MOOD [None]
  - DIZZINESS [None]
  - INSOMNIA [None]
  - MALNUTRITION [None]
